FAERS Safety Report 8475515-X (Version None)
Quarter: 2012Q2

REPORT INFORMATION
  Report Type: 
  Country: None (occurrence: None)
  Receive Date: 20120628
  Receipt Date: 20120620
  Transmission Date: 20120825
  Serious: Yes (Hospitalization, Other)
  Sender: FDA-Public Use
  Company Number: US-JNJFOC-20100501932

PATIENT
  Sex: Male
  Weight: 20.41 kg

DRUGS (13)
  1. CHILDREN'S TYLENOL SUSPENSION [Suspect]
     Route: 048
  2. ZYRTEC [Suspect]
     Route: 065
  3. CHILDREN'S MOTRIN [Suspect]
     Route: 048
  4. CHILDREN'S TYLENOL SUSPENSION [Suspect]
     Route: 048
  5. AMOXICILLIN [Suspect]
     Indication: UPPER RESPIRATORY TRACT INFECTION
     Route: 065
  6. CHILDREN'S TYLENOL SUSPENSION [Suspect]
     Indication: PRODUCT USED FOR UNKNOWN INDICATION
     Route: 048
  7. CHILDREN'S MOTRIN [Suspect]
     Route: 048
  8. CHILDREN'S TYLENOL SUSPENSION [Suspect]
     Indication: EAR INFECTION
     Dosage: 1 1/2 TEASPOON EVERY 4 HOURS
     Route: 048
     Dates: start: 20100418, end: 20100419
  9. CHILDREN'S MOTRIN [Suspect]
     Indication: PRODUCT USED FOR UNKNOWN INDICATION
     Route: 048
  10. ZYRTEC [Suspect]
     Indication: PRODUCT USED FOR UNKNOWN INDICATION
     Route: 065
  11. CHILDREN'S BENADRYL ALLERGY [Suspect]
     Indication: PRODUCT USED FOR UNKNOWN INDICATION
     Dosage: 1 1/2 TEASPOON EVERY 4 HOURS
     Route: 048
  12. AMOXICILLIN [Suspect]
     Indication: OTITIS MEDIA
     Route: 065
  13. CHILDREN'S MOTRIN [Suspect]
     Indication: PRODUCT USED FOR UNKNOWN INDICATION
     Route: 048

REACTIONS (27)
  - BRADYCARDIA [None]
  - ASPARTATE AMINOTRANSFERASE INCREASED [None]
  - URTICARIA [None]
  - ERYTHEMA MULTIFORME [None]
  - POOR QUALITY DRUG ADMINISTERED [None]
  - UPPER RESPIRATORY TRACT INFECTION [None]
  - EAR INFECTION [None]
  - PRODUCT QUALITY ISSUE [None]
  - VOMITING [None]
  - HAEMOLYSIS [None]
  - VIRAL INFECTION [None]
  - BLOOD UREA NITROGEN/CREATININE RATIO INCREASED [None]
  - PETECHIAE [None]
  - WHITE BLOOD CELL COUNT INCREASED [None]
  - PAIN IN EXTREMITY [None]
  - JOINT SWELLING [None]
  - CARDIAC MURMUR [None]
  - GAIT DISTURBANCE [None]
  - PROTEIN URINE [None]
  - EYE SWELLING [None]
  - LIP SWELLING [None]
  - HAEMATURIA [None]
  - ARTHRALGIA [None]
  - BLOOD UREA INCREASED [None]
  - BLOOD POTASSIUM INCREASED [None]
  - BLOOD GLUCOSE INCREASED [None]
  - NEUTROPHIL COUNT INCREASED [None]
